FAERS Safety Report 23118550 (Version 1)
Quarter: 2023Q4

REPORT INFORMATION
  Report Type: Spontaneous
  Country: IE (occurrence: IE)
  Receive Date: 20231028
  Receipt Date: 20231028
  Transmission Date: 20240110
  Serious: Yes (Other)
  Sender: FDA-Public Use
  Company Number: IE-002147023-NVSC2023IE226438

PATIENT
  Sex: Female

DRUGS (7)
  1. DENOSUMAB [Suspect]
     Active Substance: DENOSUMAB
     Indication: Breast cancer metastatic
     Dosage: UNK (MONTHLY)
     Route: 065
     Dates: start: 202105
  2. EXEMESTANE [Suspect]
     Active Substance: EXEMESTANE
     Indication: Breast cancer metastatic
     Dosage: UNK (MONTHLY)
     Route: 065
     Dates: start: 202105
  3. FULVESTRANT [Suspect]
     Active Substance: FULVESTRANT
     Indication: Breast cancer metastatic
     Dosage: UNK
     Route: 065
     Dates: start: 202008
  4. GOSERELIN [Suspect]
     Active Substance: GOSERELIN
     Indication: Breast cancer metastatic
     Dosage: UNK
     Route: 065
     Dates: start: 202105
  5. PALBOCICLIB [Suspect]
     Active Substance: PALBOCICLIB
     Indication: Breast cancer metastatic
     Dosage: UNK
     Route: 065
     Dates: start: 202012, end: 202104
  6. RIBOCICLIB [Suspect]
     Active Substance: RIBOCICLIB
     Indication: Breast cancer metastatic
     Dosage: UNK
     Route: 065
     Dates: start: 202008
  7. XGEVA [Suspect]
     Active Substance: DENOSUMAB
     Indication: Breast cancer metastatic
     Dosage: UNK (MONTHLY)
     Route: 065
     Dates: start: 202008

REACTIONS (5)
  - Metastases to lung [Unknown]
  - Liver function test abnormal [Unknown]
  - Rash [Unknown]
  - Tumour marker increased [Unknown]
  - Toxicity to various agents [Unknown]

NARRATIVE: CASE EVENT DATE: 20210401
